FAERS Safety Report 9727044 (Version 3)
Quarter: 2014Q2

REPORT INFORMATION
  Report Type: Spontaneous
  Country: IT (occurrence: IT)
  Receive Date: 20131203
  Receipt Date: 20140418
  Transmission Date: 20141212
  Serious: Yes (Life-Threatening)
  Sender: FDA-Public Use
  Company Number: IT-PFIZER INC-2013342559

PATIENT
  Age: 29 Year
  Sex: Female

DRUGS (2)
  1. PREPIDIL [Suspect]
     Indication: LABOUR INDUCTION
     Dosage: UNK
     Route: 005
     Dates: start: 20131111, end: 20131111
  2. OXYTOCIN [Concomitant]
     Indication: LABOUR INDUCTION

REACTIONS (6)
  - Disseminated intravascular coagulation [Recovered/Resolved with Sequelae]
  - Pruritus [Recovered/Resolved with Sequelae]
  - Dyspnoea [Recovered/Resolved with Sequelae]
  - Pelvic pain [Recovered/Resolved with Sequelae]
  - Postpartum haemorrhage [Recovered/Resolved with Sequelae]
  - Uterine hypertonus [Recovered/Resolved with Sequelae]
